FAERS Safety Report 4869600-9 (Version None)
Quarter: 2005Q4

REPORT INFORMATION
  Report Type: 
  Country: None (occurrence: None)
  Receive Date: 20051227
  Receipt Date: 20051212
  Transmission Date: 20060501
  Serious: Yes (Other)
  Sender: FDA-Public Use
  Company Number: JP-SHR-03-005826

PATIENT
  Age: 49 Year
  Sex: Female

DRUGS (21)
  1. BETAFERON                       (INTERFERON BETA - 1B) [Suspect]
     Indication: MULTIPLE SCLEROSIS
     Dosage: 8 MIU, EVERY 2D
     Dates: start: 20010214, end: 20010417
  2. CLONAZEPAM [Concomitant]
  3. METHYCOBAL (MECOBALAMIN) TABLET [Concomitant]
  4. JUVELA NICOTINATE (TOCOPHERYL NICOTINATE) CAPSULE [Concomitant]
  5. SOLU-MEDROL (METHYLPREDNISOLONE SODIUM SUCCINTAE) [Concomitant]
  6. ALEVIATIN (PHENYTOIN) [Concomitant]
  7. PREDONINE [Concomitant]
  8. ALDACTONE-A TABLET [Concomitant]
  9. ZYLORIC   GLAXO WELLCOME TABLET [Concomitant]
  10. MEILAZ (ETHYL LOFLAZEPATE) TABLET [Concomitant]
  11. SEDIEL (TANDOSPIRONE CITRATE) TABLET [Concomitant]
  12. ASPARA K (ASPARTATE POTASSIUM) TABLET [Concomitant]
  13. LIORESAL   CIBA-GEIGY   TABLET [Concomitant]
  14. GASTER (FAMOTIDINE) TABLET [Concomitant]
  15. GASTROM (ECABET MONOSODIUM) GRANULES [Concomitant]
  16. DIAZEPAM [Concomitant]
  17. CRAVIT (LEVOFLOXACIN) TABLET [Concomitant]
  18. BRUFEN [Concomitant]
  19. TRYPTANOL [Concomitant]
  20. PURSENNID         (SENNA LEAF) [Concomitant]
  21. GASCON          (DIMETICONE) [Concomitant]

REACTIONS (5)
  - DEPRESSION [None]
  - INTERSTITIAL LUNG DISEASE [None]
  - PULMONARY FIBROSIS [None]
  - SOMNOLENCE [None]
  - STAPHYLOCOCCAL INFECTION [None]
